FAERS Safety Report 10270094 (Version 1)
Quarter: 2014Q2

REPORT INFORMATION
  Report Type: Spontaneous
  Country: US (occurrence: None)
  Receive Date: 20140626
  Receipt Date: 20140626
  Transmission Date: 20141212
  Serious: Yes (Hospitalization, Other)
  Sender: FDA-Public Use
  Company Number: None

PATIENT
  Age: 80 Year
  Sex: Female
  Weight: 43.55 kg

DRUGS (11)
  1. NAMENDA XR [Suspect]
     Indication: VASCULAR DEMENTIA
     Dosage: 1 PILL
     Route: 048
     Dates: start: 20140301, end: 20140302
  2. VITAMINS [Concomitant]
  3. PROBIOTIC [Concomitant]
  4. COQ10 [Concomitant]
  5. ST. JOSEPH^S ASPIRIN [Concomitant]
  6. OMEGA 3 KRILL OIL [Concomitant]
  7. CURCUMIN [Concomitant]
  8. MAGNESIUM [Concomitant]
  9. MELATONIN [Concomitant]
  10. NIACIN B3 [Concomitant]
  11. VITAMIN D3 [Concomitant]

REACTIONS (2)
  - Cerebrovascular accident [None]
  - Drug prescribing error [None]
